FAERS Safety Report 23367208 (Version 1)
Quarter: 2024Q1

REPORT INFORMATION
  Report Type: Spontaneous
  Country: FR (occurrence: FR)
  Receive Date: 20240104
  Receipt Date: 20240104
  Transmission Date: 20240410
  Serious: Yes (Other)
  Sender: FDA-Public Use
  Company Number: None

PATIENT
  Age: 35 Year
  Sex: Female
  Weight: 70 kg

DRUGS (9)
  1. PACLITAXEL [Suspect]
     Active Substance: PACLITAXEL
     Indication: Breast cancer
     Dosage: 136 MG, CYCLIC
     Route: 042
     Dates: start: 20230914, end: 20231130
  2. CARBOPLATIN [Suspect]
     Active Substance: CARBOPLATIN
     Dosage: 190 MG, CYCLIC
     Route: 042
     Dates: start: 20230914, end: 20231130
  3. KEYTRUDA [Suspect]
     Active Substance: PEMBROLIZUMAB
     Indication: Breast cancer
     Dosage: 200 MG, CYCLIC (C1)
     Route: 042
     Dates: start: 20230914, end: 20230914
  4. KEYTRUDA [Suspect]
     Active Substance: PEMBROLIZUMAB
     Dosage: 200 MG, CYCLIC (C2)
     Route: 042
     Dates: start: 20231005, end: 20231005
  5. KEYTRUDA [Suspect]
     Active Substance: PEMBROLIZUMAB
     Dosage: 200 MG, CYCLIC (C3)
     Route: 042
     Dates: start: 20231026, end: 20231026
  6. DEXAMETHASONE [Concomitant]
     Active Substance: DEXAMETHASONE
     Indication: Chemotherapy side effect prophylaxis
     Dosage: 8 MG, CYCLIC
     Route: 042
     Dates: start: 20230914
  7. POLARAMINE [Concomitant]
     Active Substance: DEXCHLORPHENIRAMINE MALEATE
     Indication: Chemotherapy side effect prophylaxis
     Dosage: 5 MG, CYCLIC
     Route: 042
     Dates: start: 20230914
  8. ONDANSETRON [Concomitant]
     Active Substance: ONDANSETRON
     Indication: Chemotherapy side effect prophylaxis
     Dosage: 16 MG, CYCLIC (8MG MORNING AND EVENING DAY 1)
     Route: 042
     Dates: start: 20230914
  9. APREPITANT [Concomitant]
     Active Substance: APREPITANT
     Indication: Chemotherapy side effect prophylaxis
     Dosage: 125 MG, CYCLIC (125 MG DAY 1, 80 MG DAY 2 DAY3)
     Route: 042
     Dates: start: 20230914

REACTIONS (2)
  - Hypertransaminasaemia [Recovered/Resolved]
  - Cell death [Recovered/Resolved]

NARRATIVE: CASE EVENT DATE: 20231114
